FAERS Safety Report 23084359 (Version 1)
Quarter: 2023Q4

REPORT INFORMATION
  Report Type: Spontaneous
  Country: None (occurrence: US)
  Receive Date: 20231019
  Receipt Date: 20231019
  Transmission Date: 20240109
  Serious: Yes (Other)
  Sender: FDA-Public Use
  Company Number: US-Jiangsu Hengrui Medicine Co., Ltd.-2147258

PATIENT
  Age: 55 Year
  Sex: Male

DRUGS (16)
  1. DEXMEDETOMIDINE HYDROCHLORIDE [Suspect]
     Active Substance: DEXMEDETOMIDINE HYDROCHLORIDE
     Indication: Sedative therapy
  2. FENTANYL [Concomitant]
     Active Substance: FENTANYL
  3. LIDOCAINE [Concomitant]
     Active Substance: LIDOCAINE
  4. ETOMIDATE [Concomitant]
     Active Substance: ETOMIDATE
  5. ROCURONIUM [Concomitant]
     Active Substance: ROCURONIUM BROMIDE
  6. AMINOCAPROIC ACID [Concomitant]
     Active Substance: AMINOCAPROIC ACID
  7. VANCOMYCIN [Concomitant]
     Active Substance: VANCOMYCIN
  8. CEFAZOLIN [Concomitant]
     Active Substance: CEFAZOLIN
  9. NOREPINEPHRINE [Concomitant]
     Active Substance: NOREPINEPHRINE
  10. EPINEPHRINE [Concomitant]
     Active Substance: EPINEPHRINE
  11. HEPARIN [Concomitant]
     Active Substance: HEPARIN SODIUM
  12. PROTAMINE [Concomitant]
     Active Substance: PROTAMINE
  13. MAGNESIUM SULFATE [Concomitant]
     Active Substance: MAGNESIUM SULFATE
  14. POTASSIUM CHLORIDE [Concomitant]
     Active Substance: POTASSIUM CHLORIDE
  15. CALCIUM CHLORIDE [Concomitant]
     Active Substance: CALCIUM CHLORIDE
  16. INSULIN NOS [Concomitant]
     Active Substance: INSULIN NOS

REACTIONS (1)
  - Diabetes insipidus [Recovered/Resolved]
